FAERS Safety Report 9295520 (Version 2)
Quarter: 2013Q3

REPORT INFORMATION
  Report Type: Spontaneous
  Country: US (occurrence: US)
  Receive Date: 20130517
  Receipt Date: 20130708
  Transmission Date: 20140515
  Serious: Yes (Other)
  Sender: FDA-Public Use
  Company Number: US-PFIZER INC-2013151235

PATIENT
  Age: 71 Year
  Sex: Female
  Weight: 59 kg

DRUGS (10)
  1. LYRICA [Suspect]
     Indication: FIBROMYALGIA
     Dosage: 75 MG, 2X/DAY
     Route: 048
     Dates: start: 1998
  2. LYRICA [Suspect]
     Indication: NEUROPATHY PERIPHERAL
     Dosage: 75 MG, 2X/DAY
     Route: 048
  3. LYRICA [Suspect]
     Indication: NEUROPATHY PERIPHERAL
  4. COUMADINE [Concomitant]
     Indication: THROMBOSIS
     Dosage: UNK
  5. PRILOSEC [Concomitant]
     Dosage: UNK
  6. OMEPRAZOLE [Concomitant]
     Indication: GASTRIC DISORDER
     Dosage: 40 MG/DAY
  7. CYMBALTA [Concomitant]
     Indication: PAIN
     Dosage: 60 MG/DAY
  8. CYMBALTA [Concomitant]
     Indication: DEPRESSION
  9. LEVOTHYROXINE [Concomitant]
     Indication: THYROID DISORDER
     Dosage: 50 MG, 1X/DAY
  10. HYDROCODONE W/ACETAMINOPHEN [Concomitant]
     Indication: PAIN
     Dosage: HYDROCODONE 10/ACETAMINOPHEN 325 MG, AS NEEDED

REACTIONS (6)
  - Plasma cell myeloma [Unknown]
  - Hypoacusis [Unknown]
  - Weight decreased [Unknown]
  - Neoplasm malignant [Unknown]
  - Aphagia [Unknown]
  - Expired drug administered [Unknown]
